FAERS Safety Report 19486909 (Version 1)
Quarter: 2021Q3

REPORT INFORMATION
  Report Type: Spontaneous
  Country: US (occurrence: US)
  Receive Date: 20210702
  Receipt Date: 20210702
  Transmission Date: 20211014
  Serious: Yes (Other)
  Sender: FDA-Public Use
  Company Number: US-SUN PHARMACEUTICAL INDUSTRIES LTD-2021R1-302123

PATIENT
  Sex: Female

DRUGS (5)
  1. QUETIAPINE. [Suspect]
     Active Substance: QUETIAPINE
     Indication: DEPRESSION
     Dosage: 300 MILLIGRAM, DAILY
     Route: 065
  2. NORTRIPTYLINE [Suspect]
     Active Substance: NORTRIPTYLINE
     Indication: DEPRESSION
     Dosage: 150 MILLIGRAM, DAILY
     Route: 065
  3. PHENELZINE [Suspect]
     Active Substance: PHENELZINE
     Indication: DEPRESSION
     Dosage: 45 MILLIGRAM, DAILY
     Route: 065
  4. LITHIUM. [Suspect]
     Active Substance: LITHIUM
     Indication: DEPRESSION
     Dosage: 900 MILLIGRAM, DAILY
     Route: 065
  5. METHYLPHENIDATE. [Suspect]
     Active Substance: METHYLPHENIDATE
     Indication: DEPRESSION
     Dosage: 10 MILLIGRAM, DAILY
     Route: 065

REACTIONS (1)
  - Treatment failure [Unknown]
